FAERS Safety Report 5567603-2 (Version None)
Quarter: 2007Q4

REPORT INFORMATION
  Report Type: 
  Country: None (occurrence: None)
  Receive Date: 20071214
  Receipt Date: 20071120
  Transmission Date: 20080405
  Serious: Yes (Other)
  Sender: FDA-Public Use
  Company Number: PHBS2007ES19453

PATIENT
  Age: 43 Year
  Sex: Female

DRUGS (4)
  1. LIORESAL [Suspect]
     Indication: MUSCLE SPASTICITY
     Dosage: 0.05 MG/ML; INTRATHECAL
     Route: 037
  2. DIAZEPAM [Suspect]
     Dosage: ORAL
     Route: 048
  3. NEURONTIN [Suspect]
     Dosage: ORAL
     Route: 048
  4. DYSPORT                 (BOTULINUM TOXIN TYPE A) [Suspect]
     Indication: MUSCLE SPASTICITY
     Dosage: 1000IU, SUBCUTANEOUS
     Route: 058
     Dates: start: 20070221

REACTIONS (4)
  - EYE OPERATION [None]
  - OPHTHALMOLOGICAL EXAMINATION ABNORMAL [None]
  - STRABISMUS [None]
  - VISUAL DISTURBANCE [None]
